FAERS Safety Report 13259072 (Version 3)
Quarter: 2017Q4

REPORT INFORMATION
  Report Type: Report from Study
  Country: FR (occurrence: FR)
  Receive Date: 20170222
  Receipt Date: 20171120
  Transmission Date: 20180320
  Serious: Yes (Hospitalization, Other)
  Sender: FDA-Public Use
  Company Number: FR-VIIV HEALTHCARE LIMITED-FR2017GSK020319

PATIENT
  Age: 68 Year
  Sex: Female
  Weight: 73 kg

DRUGS (10)
  1. RASILEZ [Concomitant]
     Active Substance: ALISKIREN
     Indication: HYPERTENSION
     Dosage: 1 UNK, 1D
     Route: 048
     Dates: start: 20101123
  2. TARDYFERON [Concomitant]
     Active Substance: FERROUS SULFATE
     Indication: IRON DEFICIENCY
     Dosage: 1 UNK, 1D
     Route: 048
     Dates: start: 20100408
  3. CRESTOR [Concomitant]
     Active Substance: ROSUVASTATIN CALCIUM
     Indication: DYSLIPIDAEMIA
     Dosage: 1 MG, 1D
     Route: 048
     Dates: start: 20090430
  4. PREZISTA [Suspect]
     Active Substance: DARUNAVIR ETHANOLATE
     Indication: HIV INFECTION
     Dosage: 600 MG, BID
     Route: 048
  5. POTASSIUM GLUCONATE [Concomitant]
     Active Substance: POTASSIUM GLUCONATE
     Indication: HYPERTENSION
     Dosage: 2 UNK, TID
     Route: 048
     Dates: start: 20050920
  6. DOLUTEGRAVIR [Suspect]
     Active Substance: DOLUTEGRAVIR
     Indication: HIV INFECTION
     Dosage: 50 MG, BID
     Route: 048
     Dates: start: 20141219
  7. NORVIR [Suspect]
     Active Substance: RITONAVIR
     Indication: HIV INFECTION
     Dosage: 100 MG, BID
     Route: 048
     Dates: start: 20100715
  8. SPIRIVA [Concomitant]
     Active Substance: TIOTROPIUM BROMIDE MONOHYDRATE
     Indication: RESPIRATORY TRACT INFECTION
     Dosage: 18 UNK, 1D
     Route: 055
     Dates: start: 20141211
  9. ATENOLOL. [Concomitant]
     Active Substance: ATENOLOL
     Indication: HYPERTENSION
     Dosage: 100 MG, BID
     Route: 048
     Dates: start: 20090121
  10. MONO-TILDIEM LP [Concomitant]
     Active Substance: DILTIAZEM
     Indication: HYPERTENSION
     Dosage: 200 MG, 1D
     Route: 048
     Dates: start: 20091105

REACTIONS (3)
  - Cerebrovascular accident [Recovering/Resolving]
  - Essential thrombocythaemia [Unknown]
  - Headache [Unknown]

NARRATIVE: CASE EVENT DATE: 20141230
